FAERS Safety Report 16066576 (Version 1)
Quarter: 2019Q1

REPORT INFORMATION
  Report Type: Spontaneous
  Country: US (occurrence: US)
  Receive Date: 20190313
  Receipt Date: 20190313
  Transmission Date: 20190418
  Serious: No
  Sender: FDA-Public Use
  Company Number: US-AVEDRO-AVE-2018-0300-AE

PATIENT
  Age: 43 Year
  Sex: Male

DRUGS (3)
  1. PHOTREXA VISCOUS [Suspect]
     Active Substance: RIBOFLAVIN 5^-PHOSPHATE SODIUM
     Dosage: 1 DROP EVERY 2 MINUTES FOR A TOTAL OF 15 DROPS DURING IRRADIATION PERIOD
     Route: 047
     Dates: start: 20181026, end: 20181026
  2. PHOTREXA [Suspect]
     Active Substance: RIBOFLAVIN 5^-PHOSPHATE SODIUM
     Indication: PRODUCT USED FOR UNKNOWN INDICATION
     Dosage: 1 DROP EVERY 10 SECONDS FOR A TOTAL OF 63.48 MINUTES
     Route: 047
     Dates: start: 20181026, end: 20181026
  3. PHOTREXA VISCOUS [Suspect]
     Active Substance: RIBOFLAVIN 5^-PHOSPHATE SODIUM
     Indication: PRODUCT USED FOR UNKNOWN INDICATION
     Dosage: 1 DROP EVERY 2 MINUTES FOR A TOTAL OF 15 DROPS DURING SOAK PERIOD
     Route: 047
     Dates: start: 20181026, end: 20181026

REACTIONS (2)
  - Drug ineffective [Unknown]
  - Inappropriate schedule of product administration [Unknown]

NARRATIVE: CASE EVENT DATE: 20181026
